FAERS Safety Report 23932574 (Version 2)
Quarter: 2024Q2

REPORT INFORMATION
  Report Type: Spontaneous
  Country: JP (occurrence: JP)
  Receive Date: 20240603
  Receipt Date: 20240618
  Transmission Date: 20240716
  Serious: Yes (Death, Hospitalization, Other)
  Sender: FDA-Public Use
  Company Number: JP-GILEAD-2024-0674790

PATIENT
  Sex: Male

DRUGS (3)
  1. VEKLURY [Suspect]
     Active Substance: REMDESIVIR
     Indication: COVID-19
     Dosage: UNK
     Route: 065
  2. TOCILIZUMAB [Concomitant]
     Active Substance: TOCILIZUMAB
     Indication: COVID-19
  3. SOTROVIMAB [Concomitant]
     Active Substance: SOTROVIMAB

REACTIONS (4)
  - Death [Fatal]
  - Fat embolism [Fatal]
  - Pulmonary embolism [Fatal]
  - Diabetic foot infection [Unknown]
